FAERS Safety Report 24188181 (Version 1)
Quarter: 2024Q3

REPORT INFORMATION
  Report Type: Spontaneous
  Country: DE (occurrence: DE)
  Receive Date: 20240808
  Receipt Date: 20240808
  Transmission Date: 20241016
  Serious: Yes (Hospitalization)
  Sender: MYLAN
  Company Number: DE-MYLANLABS-2024M1072263

PATIENT
  Age: 73 Year
  Sex: Female

DRUGS (19)
  1. AZATHIOPRINE [Suspect]
     Active Substance: AZATHIOPRINE
     Indication: Pemphigus
     Dosage: 100 MILLIGRAM, QD
     Route: 065
  2. ACETAMINOPHEN [Suspect]
     Active Substance: ACETAMINOPHEN
     Indication: Premedication
     Dosage: 1 GRAM
     Route: 048
  3. CLEMASTINE FUMARATE [Suspect]
     Active Substance: CLEMASTINE FUMARATE
     Indication: Premedication
     Dosage: 1 MILLIGRAM
     Route: 042
  4. INTRATECT [Concomitant]
     Active Substance: HUMAN IMMUNOGLOBULIN G
     Indication: Pemphigus
     Dosage: UNK; 100G/L; 2?G/KG FOR 3?DAYS EVERY 4?WEEKS
     Route: 042
  5. INTRATECT [Concomitant]
     Active Substance: HUMAN IMMUNOGLOBULIN G
     Dosage: UNK; 100 G/L; 2?G/KG FOR 3?DAYS EVERY 4?WEEKS
     Route: 042
  6. INTRATECT [Concomitant]
     Active Substance: HUMAN IMMUNOGLOBULIN G
     Dosage: UNK; INFUSION RATE REDUCED TO 200?ML/H
     Route: 042
  7. YIMMUGO [Concomitant]
     Active Substance: HUMAN IMMUNOGLOBULIN G-DIRA
     Indication: Pemphigus
     Dosage: UNK; 100?G/L; 2?G/KG FOR 3?DAYS EVERY 4?WEEKS.
     Route: 042
  8. PREDNISOLONE [Concomitant]
     Active Substance: PREDNISOLONE
     Indication: Pemphigus
     Dosage: UNK
     Route: 065
  9. PREDNISOLONE [Concomitant]
     Active Substance: PREDNISOLONE
     Dosage: 150 MILLIGRAM, QD
     Route: 065
  10. PREDNISOLONE [Concomitant]
     Active Substance: PREDNISOLONE
     Dosage: 5 MILLIGRAM, QD
     Route: 065
  11. PREDNISOLONE [Concomitant]
     Active Substance: PREDNISOLONE
     Dosage: UNK; DOSE REDUCED
     Route: 065
  12. PREDNISOLONE [Concomitant]
     Active Substance: PREDNISOLONE
     Dosage: 150 MILLIGRAM, QD
     Route: 065
  13. PREDNISOLONE [Concomitant]
     Active Substance: PREDNISOLONE
     Dosage: UNK; DOSE REDUCED
     Route: 065
  14. MYCOPHENOLATE MOFETIL [Concomitant]
     Active Substance: MYCOPHENOLATE MOFETIL
     Indication: Pemphigus
     Dosage: 3 GRAM, QD
     Route: 065
  15. MYCOPHENOLATE MOFETIL [Concomitant]
     Active Substance: MYCOPHENOLATE MOFETIL
     Dosage: 3 GRAM, QD
     Route: 065
  16. MYCOPHENOLATE MOFETIL [Concomitant]
     Active Substance: MYCOPHENOLATE MOFETIL
     Dosage: UNK; DOSE REDUCED.
     Route: 065
  17. DAPSONE [Concomitant]
     Active Substance: DAPSONE
     Indication: Pemphigus
     Dosage: 100 MILLIGRAM, QD
     Route: 065
  18. DAPSONE [Concomitant]
     Active Substance: DAPSONE
     Dosage: 100 MILLIGRAM, QD
     Route: 065
  19. DAPSONE [Concomitant]
     Active Substance: DAPSONE
     Dosage: UNK; DOSE REDUCED.
     Route: 065

REACTIONS (1)
  - Drug ineffective [Unknown]
